FAERS Safety Report 7325940-5 (Version None)
Quarter: 2011Q1

REPORT INFORMATION
  Report Type: 
  Country: None (occurrence: None)
  Receive Date: 20110302
  Receipt Date: 20110125
  Transmission Date: 20110831
  Serious: Yes (Death)
  Sender: FDA-Public Use
  Company Number: US-TYCO HEALTHCARE/MALLINCKRODT-T201100377

PATIENT
  Sex: Male

DRUGS (3)
  1. ALPRAZOLAM [Suspect]
  2. HYDROCODONE/ACETAMINOPHEN [Suspect]
  3. ALL OTHER THERAPEUTIC PRODUCTS [Suspect]

REACTIONS (1)
  - COMPLETED SUICIDE [None]
